FAERS Safety Report 6086467-4 (Version None)
Quarter: 2009Q1

REPORT INFORMATION
  Report Type: 
  Country: None (occurrence: None)
  Receive Date: 20090223
  Receipt Date: 20090211
  Transmission Date: 20090719
  Serious: Yes (Other)
  Sender: FDA-Public Use
  Company Number: PHHY2009BE05242

PATIENT
  Sex: Male

DRUGS (3)
  1. RASILEZ [Suspect]
     Indication: HYPERTENSION
     Dosage: 150 MG, QD
     Route: 048
  2. COVERSYL                                /BEL/ [Concomitant]
     Dosage: 10 MG, UNK
  3. NOBITEN [Concomitant]
     Dosage: 5 MG, UNK

REACTIONS (4)
  - FALL [None]
  - HEAD INJURY [None]
  - HYPOTENSION [None]
  - SYNCOPE [None]
